FAERS Safety Report 9051494 (Version 1)
Quarter: 2013Q1

REPORT INFORMATION
  Report Type: Spontaneous
  Country: US (occurrence: US)
  Receive Date: 20130206
  Receipt Date: 20130206
  Transmission Date: 20140127
  Serious: No
  Sender: FDA-Public Use
  Company Number: US-ALLERGAN-1216129US

PATIENT
  Sex: Male

DRUGS (3)
  1. RESTASIS [Suspect]
     Indication: DRY EYE
     Dosage: 2 GTT, BID
  2. RESTASIS [Suspect]
     Indication: OCULAR HYPERAEMIA
  3. SYNVISC                            /00567501/ [Concomitant]
     Indication: ARTHRALGIA
     Dosage: UNK

REACTIONS (2)
  - Eye irritation [Unknown]
  - Eye pain [Not Recovered/Not Resolved]
